FAERS Safety Report 16610013 (Version 1)
Quarter: 2019Q3

REPORT INFORMATION
  Report Type: Spontaneous
  Country: CA (occurrence: CA)
  Receive Date: 20190722
  Receipt Date: 20190722
  Transmission Date: 20191004
  Serious: Yes (Other)
  Sender: FDA-Public Use
  Company Number: CA-TEVA-2019-CA-1079818

PATIENT
  Age: 83 Year
  Sex: Female

DRUGS (21)
  1. TRAMADOL HYDROCHLORIDE. [Suspect]
     Active Substance: TRAMADOL HYDROCHLORIDE
     Indication: LUMBAR RADICULOPATHY
  2. ALENDRONATE SODIUM (NGX) [Concomitant]
     Active Substance: ALENDRONATE SODIUM
  3. DESIPRAMINE [Concomitant]
     Active Substance: DESIPRAMINE
  4. CODEINE PHOSPHATE [Suspect]
     Active Substance: CODEINE PHOSPHATE
     Indication: LUMBAR RADICULOPATHY
  5. ACETAMINOPHEN. [Concomitant]
     Active Substance: ACETAMINOPHEN
  6. CODEINE PHOSPHATE [Suspect]
     Active Substance: CODEINE PHOSPHATE
     Indication: OSTEOARTHRITIS
  7. OXYCODONE-ACETAMINOPHEN [Suspect]
     Active Substance: ACETAMINOPHEN\OXYCODONE HYDROCHLORIDE
     Indication: OSTEOPENIA
  8. OXYCODONE-ACETAMINOPHEN [Suspect]
     Active Substance: ACETAMINOPHEN\OXYCODONE HYDROCHLORIDE
     Indication: OSTEOARTHRITIS
  9. MEPERIDINE [Suspect]
     Active Substance: MEPERIDINE
     Indication: OSTEOPENIA
     Route: 065
  10. OXYCODONE-ACETAMINOPHEN [Suspect]
     Active Substance: ACETAMINOPHEN\OXYCODONE HYDROCHLORIDE
     Indication: LUMBAR RADICULOPATHY
  11. HYDROCHLOROTHIAZIDE. [Concomitant]
     Active Substance: HYDROCHLOROTHIAZIDE
  12. CODEINE PHOSPHATE [Suspect]
     Active Substance: CODEINE PHOSPHATE
     Indication: OSTEOPENIA
     Route: 065
  13. MEPERIDINE [Suspect]
     Active Substance: MEPERIDINE
     Indication: OSTEOARTHRITIS
  14. MEPERIDINE [Suspect]
     Active Substance: MEPERIDINE
     Indication: LUMBAR RADICULOPATHY
  15. TRAMADOL HYDROCHLORIDE. [Suspect]
     Active Substance: TRAMADOL HYDROCHLORIDE
     Indication: OSTEOARTHRITIS
  16. LANSOPRAZOLE. [Concomitant]
     Active Substance: LANSOPRAZOLE
  17. QUINAPRIL. [Concomitant]
     Active Substance: QUINAPRIL
  18. SIMVASTATIN. [Concomitant]
     Active Substance: SIMVASTATIN
  19. TEVETEN [Concomitant]
     Active Substance: EPROSARTAN MESYLATE
  20. TRAMADOL HYDROCHLORIDE. [Suspect]
     Active Substance: TRAMADOL HYDROCHLORIDE
     Indication: OSTEOPENIA
     Route: 065
  21. AMITRIPTYLINE [Concomitant]
     Active Substance: AMITRIPTYLINE

REACTIONS (2)
  - Drug intolerance [Unknown]
  - Drug ineffective [Unknown]
